FAERS Safety Report 7431803-7 (Version None)
Quarter: 2011Q2

REPORT INFORMATION
  Report Type: 
  Country: None (occurrence: None)
  Receive Date: 20110422
  Receipt Date: 20110418
  Transmission Date: 20111010
  Serious: Yes (Hospitalization)
  Sender: FDA-Public Use
  Company Number: PHHO2011US06883

PATIENT
  Sex: Female
  Weight: 86 kg

DRUGS (3)
  1. CARBOPLATIN [Suspect]
     Indication: METASTATIC NEOPLASM
     Dosage: 495 MG, DAY 1 OF 21 DAY CYCLE
     Dates: start: 20110407
  2. AFINITOR [Suspect]
     Indication: METASTATIC NEOPLASM
     Dosage: 30 G, DAYS 1, 8 AND 15 OF 21 DAY CYCLE
     Route: 048
     Dates: start: 20110407
  3. PACLITAXEL [Suspect]
     Indication: METASTATIC NEOPLASM
     Dosage: 232 MG, DAY 1 OF 21 DAY CYCLE
     Dates: start: 20110407

REACTIONS (5)
  - WHITE BLOOD CELL COUNT DECREASED [None]
  - DIARRHOEA [None]
  - VOMITING [None]
  - FEBRILE NEUTROPENIA [None]
  - NAUSEA [None]
